FAERS Safety Report 20482326 (Version 1)
Quarter: 2022Q1

REPORT INFORMATION
  Report Type: Report from Study
  Country: GB (occurrence: None)
  Receive Date: 20220216
  Receipt Date: 20220216
  Transmission Date: 20220424
  Serious: Yes (Hospitalization, Other)
  Sender: FDA-Public Use
  Company Number: GB-Merck Healthcare KGaA-9299819

PATIENT
  Sex: Male

DRUGS (3)
  1. REBIF [Suspect]
     Active Substance: INTERFERON BETA-1A
     Indication: Multiple sclerosis
     Dosage: PRE-FILLED SYRINGE
     Route: 058
     Dates: start: 20080519
  2. INFLUENZA VIRUS VACCINE [Concomitant]
     Active Substance: INFLUENZA VIRUS VACCINE
     Indication: Influenza immunisation
  3. PNEUMOCOCCAL VACCINE POLYVALENT NOS [Concomitant]
     Active Substance: PNEUMOCOCCAL VACCINE POLYVALENT
     Indication: Pneumococcal immunisation

REACTIONS (3)
  - Immunodeficiency [Recovering/Resolving]
  - Multiple sclerosis relapse [Recovering/Resolving]
  - Malaise [Recovering/Resolving]
